FAERS Safety Report 5799049-6 (Version None)
Quarter: 2008Q3

REPORT INFORMATION
  Report Type: 
  Country: None (occurrence: None)
  Receive Date: 20080702
  Receipt Date: 20080624
  Transmission Date: 20090109
  Serious: Yes (Other)
  Sender: FDA-Public Use
  Company Number: US-PFIZER INC-2008015621

PATIENT
  Sex: Male
  Weight: 31 kg

DRUGS (7)
  1. CHANTIX [Suspect]
     Indication: SMOKING CESSATION THERAPY
     Dates: start: 20080126, end: 20080210
  2. CARBAMAZEPINE [Concomitant]
  3. LORAZEPAM [Concomitant]
  4. ATENOLOL [Concomitant]
  5. NEURONTIN [Concomitant]
  6. CYMBALTA [Concomitant]
  7. HYDROCHLOROTHIAZIDE [Concomitant]

REACTIONS (2)
  - PERFORMANCE STATUS DECREASED [None]
  - SOMNOLENCE [None]
